FAERS Safety Report 13233481 (Version 1)
Quarter: 2017Q1

REPORT INFORMATION
  Report Type: Report from Study
  Country: PL (occurrence: PL)
  Receive Date: 20170215
  Receipt Date: 20170215
  Transmission Date: 20170428
  Serious: Yes (Hospitalization, Other)
  Sender: FDA-Public Use
  Company Number: PL-SUN PHARMACEUTICAL INDUSTRIES LTD-2016R1-110306

PATIENT
  Age: 65 Year
  Sex: Male

DRUGS (3)
  1. VERAPAMIL [Interacting]
     Active Substance: VERAPAMIL HYDROCHLORIDE
     Indication: HYPERTENSION
     Dosage: 240 MG, DAILY
     Route: 065
  2. ENALAPRIL [Interacting]
     Active Substance: ENALAPRIL
     Indication: HYPERTENSION
     Dosage: 20 MG, DAILY
     Route: 065
  3. LITHIUM. [Suspect]
     Active Substance: LITHIUM
     Indication: BIPOLAR DISORDER
     Dosage: 900 MG, DAILY
     Route: 065

REACTIONS (8)
  - Hypothyroidism [Recovering/Resolving]
  - Nausea [Unknown]
  - Pancreatitis acute [Unknown]
  - Constipation [Unknown]
  - Potentiating drug interaction [Unknown]
  - Hyperparathyroidism primary [Recovering/Resolving]
  - Vomiting [Unknown]
  - Nephrogenic diabetes insipidus [Recovering/Resolving]
